FAERS Safety Report 18002178 (Version 1)
Quarter: 2020Q3

REPORT INFORMATION
  Report Type: Spontaneous
  Country: FR (occurrence: FR)
  Receive Date: 20200710
  Receipt Date: 20200710
  Transmission Date: 20201103
  Serious: Yes (Hospitalization, Other)
  Sender: FDA-Public Use
  Company Number: FR-AUROBINDO-AUR-APL-2020-033672

PATIENT
  Age: 16 Year
  Sex: Female
  Weight: 77 kg

DRUGS (1)
  1. AMOXICILLIN. [Suspect]
     Active Substance: AMOXICILLIN
     Indication: TOOTH ABSCESS
     Dosage: UNK
     Route: 048
     Dates: start: 20200409, end: 20200416

REACTIONS (1)
  - Eosinophilic pneumonia acute [Recovered/Resolved]

NARRATIVE: CASE EVENT DATE: 20200417
